FAERS Safety Report 7311949-4 (Version None)
Quarter: 2011Q1

REPORT INFORMATION
  Report Type: 
  Country: None (occurrence: None)
  Receive Date: 20110224
  Receipt Date: 20110210
  Transmission Date: 20110831
  Serious: Yes (Hospitalization, Other)
  Sender: FDA-Public Use
  Company Number: JP-CELGENEUS-087-50794-10121621

PATIENT
  Sex: Female

DRUGS (6)
  1. VIDAZA [Suspect]
     Route: 058
     Dates: start: 20110104, end: 20110110
  2. RED BLOOD CELLS [Concomitant]
     Dosage: 2-4 UNITS
     Route: 051
     Dates: start: 20100101
  3. VIDAZA [Suspect]
     Route: 058
     Dates: start: 20110202, end: 20110208
  4. VIDAZA [Suspect]
     Indication: MYELODYSPLASTIC SYNDROME
     Route: 058
     Dates: start: 20101110, end: 20101116
  5. LENDORMIN [Concomitant]
     Route: 048
     Dates: start: 20080725
  6. CATALIN [Concomitant]
     Indication: CATARACT
     Route: 065
     Dates: start: 20080924

REACTIONS (3)
  - PNEUMONIA [None]
  - DEMENTIA [None]
  - CARDIAC FAILURE [None]
